FAERS Safety Report 7621598-6 (Version None)
Quarter: 2011Q3

REPORT INFORMATION
  Report Type: 
  Country: None (occurrence: None)
  Receive Date: 20110719
  Receipt Date: 20100412
  Transmission Date: 20111222
  Serious: Yes (Death, Hospitalization, Other)
  Sender: FDA-Public Use
  Company Number: PHHY2010US92327

PATIENT
  Age: 83 Year
  Sex: Female
  Weight: 58.957 kg

DRUGS (5)
  1. SYNTHROID [Concomitant]
     Dosage: 137 UG, UNK
  2. RECLAST [Suspect]
     Indication: OSTEOPENIA
     Dosage: 5 MG, ONCE IN YEAR
     Route: 042
     Dates: start: 20091005
  3. FUROSEMIDE [Concomitant]
     Dosage: 20 MG, PRN
  4. FUROSEMIDE [Concomitant]
     Dosage: 40 MG, BID
  5. SYNTHROID [Concomitant]
     Dosage: 125 UG, UNK

REACTIONS (13)
  - WEIGHT DECREASED [None]
  - RENAL VASCULITIS [None]
  - DYSPNOEA [None]
  - JOINT SWELLING [None]
  - PLATELET COUNT INCREASED [None]
  - ANXIETY [None]
  - URINE OUTPUT DECREASED [None]
  - HEART RATE IRREGULAR [None]
  - ASTHENIA [None]
  - GLOMERULAR VASCULAR DISORDER [None]
  - DEATH [None]
  - BLOOD CREATININE INCREASED [None]
  - OEDEMA PERIPHERAL [None]
